FAERS Safety Report 4977357-6 (Version None)
Quarter: 2006Q2

REPORT INFORMATION
  Report Type: 
  Country: None (occurrence: None)
  Receive Date: 20060419
  Receipt Date: 20051024
  Transmission Date: 20061013
  Serious: Yes (Hospitalization)
  Sender: FDA-Public Use
  Company Number: US-MERCK-0510USA08972

PATIENT
  Age: 62 Year
  Sex: Female
  Weight: 105 kg

DRUGS (4)
  1. VIOXX [Suspect]
     Indication: ARTHRITIS
     Route: 048
     Dates: start: 20000801, end: 20020702
  2. ZESTORETIC [Concomitant]
     Route: 065
  3. LORTAB [Concomitant]
     Route: 065
  4. TEMAZEPAM [Concomitant]
     Route: 065

REACTIONS (10)
  - ANHEDONIA [None]
  - CEREBROVASCULAR ACCIDENT [None]
  - DIPLOPIA [None]
  - HYPERTENSION [None]
  - OSTEOARTHRITIS [None]
  - PNEUMONIA [None]
  - PNEUMONIA BACTERIAL [None]
  - ROAD TRAFFIC ACCIDENT [None]
  - TRANSIENT ISCHAEMIC ATTACK [None]
  - VERTIGO [None]
